FAERS Safety Report 20785411 (Version 2)
Quarter: 2022Q4

REPORT INFORMATION
  Report Type: Spontaneous
  Country: BR (occurrence: BR)
  Receive Date: 20220504
  Receipt Date: 20221020
  Transmission Date: 20230113
  Serious: Yes (Other)
  Sender: FDA-Public Use
  Company Number: BR-JNJFOC-20220455679

PATIENT
  Sex: Female

DRUGS (1)
  1. REMICADE [Suspect]
     Active Substance: INFLIXIMAB
     Indication: Product used for unknown indication
     Route: 041

REACTIONS (5)
  - Hyperthyroidism [Unknown]
  - Systemic lupus erythematosus [Unknown]
  - Skin lesion [Unknown]
  - Photosensitivity reaction [Unknown]
  - Rheumatoid factor increased [Recovered/Resolved]
